FAERS Safety Report 4445870-6 (Version None)
Quarter: 2004Q3

REPORT INFORMATION
  Report Type: 
  Country: None (occurrence: None)
  Receive Date: 20040907
  Receipt Date: 20040830
  Transmission Date: 20050211
  Serious: Yes (Life-Threatening, Other)
  Sender: FDA-Public Use
  Company Number: HQWYE422519AUG04

PATIENT
  Age: 68 Year
  Sex: Female

DRUGS (4)
  1. PREMARIN [Suspect]
     Indication: MENOPAUSAL SYMPTOMS
     Dosage: 0.625 MG DAILY ORAL
     Route: 048
     Dates: start: 20040421, end: 20040801
  2. NEUROVITAN (CYANOCOBALAMIN/OCTOTIAMINE/PYRIDOXINE HYDROCHLORIDE/RIBOFL [Concomitant]
  3. CONSTAN (ALPRAZOLAM) [Concomitant]
  4. MEDROXYPROGESTERONE ACETATE (MEDROXYOPROGESTERONE ACETATE) [Concomitant]

REACTIONS (3)
  - PHOTOSENSITIVITY REACTION [None]
  - THROMBOCYTOPENIA [None]
  - VASCULAR PURPURA [None]
